FAERS Safety Report 12316652 (Version 2)
Quarter: 2016Q3

REPORT INFORMATION
  Report Type: Spontaneous
  Country: GB (occurrence: GB)
  Receive Date: 20160429
  Receipt Date: 20160804
  Transmission Date: 20161109
  Serious: Yes (Other)
  Sender: FDA-Public Use
  Company Number: GB-009507513-1604GBR017381

PATIENT
  Age: 77 Year
  Sex: Female
  Weight: 50.8 kg

DRUGS (1)
  1. PEMBROLIZUMAB. [Suspect]
     Active Substance: PEMBROLIZUMAB
     Indication: METASTATIC MALIGNANT MELANOMA
     Dosage: 2MG/KG, UNKNOWN
     Route: 042
     Dates: start: 20151204, end: 20160304

REACTIONS (5)
  - Achromotrichia acquired [Recovered/Resolved]
  - Blindness [Recovered/Resolved]
  - Uveitis [Recovered/Resolved]
  - Deafness [Recovered/Resolved]
  - Vogt-Koyanagi-Harada syndrome [Recovered/Resolved]

NARRATIVE: CASE EVENT DATE: 20160311
